FAERS Safety Report 5009117-4 (Version None)
Quarter: 2006Q2

REPORT INFORMATION
  Report Type: 
  Country: None (occurrence: None)
  Receive Date: 20060516
  Receipt Date: 20060508
  Transmission Date: 20061013
  Serious: Yes (Hospitalization)
  Sender: FDA-Public Use
  Company Number: DEWYE606308MAY06

PATIENT
  Age: 17 Year
  Sex: Female

DRUGS (4)
  1. VENLAFAXINE HCL [Suspect]
     Dosage: ^A FISTFUL OF TABLETS^ (OVERDOSE AMOUNT)
     Route: 048
     Dates: start: 20060507, end: 20060507
  2. AMITRIPTYLINE HCL [Suspect]
     Route: 048
     Dates: start: 20060507, end: 20060507
  3. DICLOFENAC (DICLOFENAC, , 0) [Suspect]
     Route: 048
     Dates: start: 20060507, end: 20060507
  4. IMIPRAMINE [Suspect]
     Route: 048
     Dates: start: 20060507, end: 20060507

REACTIONS (4)
  - MULTIPLE DRUG OVERDOSE INTENTIONAL [None]
  - SOMNOLENCE [None]
  - SUICIDE ATTEMPT [None]
  - TACHYCARDIA [None]
